FAERS Safety Report 16758668 (Version 5)
Quarter: 2021Q1

REPORT INFORMATION
  Report Type: Spontaneous
  Country: JP (occurrence: JP)
  Receive Date: 20190830
  Receipt Date: 20210326
  Transmission Date: 20210419
  Serious: Yes (Death, Life-Threatening, Hospitalization, Other)
  Sender: FDA-Public Use
  Company Number: JP-ASTELLAS-2019JP012438

PATIENT
  Age: 6 Year
  Sex: Male
  Weight: 19 kg

DRUGS (25)
  1. METHOTREXATE. [Concomitant]
     Active Substance: METHOTREXATE
     Indication: PROPHYLAXIS AGAINST GRAFT VERSUS HOST DISEASE
     Route: 042
     Dates: start: 20131115, end: 20131115
  2. BUSULFEX [Suspect]
     Active Substance: BUSULFAN
     Indication: BONE MARROW CONDITIONING REGIMEN
     Route: 042
     Dates: start: 20131101, end: 20131102
  3. FLUDARABINE [Suspect]
     Active Substance: FLUDARABINE PHOSPHATE
     Indication: BONE MARROW CONDITIONING REGIMEN
     Route: 042
     Dates: start: 20131103, end: 20131108
  4. ZOSYN [Concomitant]
     Active Substance: PIPERACILLIN SODIUM\TAZOBACTAM SODIUM
     Indication: FEBRILE NEUTROPENIA
     Route: 042
     Dates: start: 20131114, end: 20131121
  5. FENTANYL. [Concomitant]
     Active Substance: FENTANYL
     Indication: MUCOSAL DISORDER
     Dosage: 0.4 MG, ONCE DAILY
     Route: 042
     Dates: start: 20131118, end: 20131128
  6. THYMOGLOBULINE [Concomitant]
     Active Substance: LAPINE T-LYMPHOCYTE IMMUNE GLOBULIN
     Indication: GRAFT VERSUS HOST DISEASE
     Dosage: 10?40 MG/DAY, ONCE DAILY
     Route: 042
     Dates: start: 20131210, end: 20131210
  7. FUNGUARD [Concomitant]
     Active Substance: MICAFUNGIN SODIUM
     Indication: INFECTION PROPHYLAXIS
     Route: 042
     Dates: start: 20131114
  8. METHOTREXATE. [Concomitant]
     Active Substance: METHOTREXATE
     Route: 042
     Dates: start: 20131120, end: 20131120
  9. PROGRAF [Suspect]
     Active Substance: TACROLIMUS
     Indication: PROPHYLAXIS AGAINST GRAFT VERSUS HOST DISEASE
     Dosage: 0.35 MG, TWICE DAILY
     Route: 048
     Dates: start: 20131202, end: 20131211
  10. VEPESID [Concomitant]
     Active Substance: ETOPOSIDE
     Indication: HAEMOPHAGOCYTIC LYMPHOHISTIOCYTOSIS
     Route: 042
     Dates: start: 20131214, end: 20131214
  11. VEPESID [Concomitant]
     Active Substance: ETOPOSIDE
     Route: 042
     Dates: start: 20140101, end: 20140101
  12. THYMOGLOBULINE [Concomitant]
     Active Substance: LAPINE T-LYMPHOCYTE IMMUNE GLOBULIN
     Dosage: 10?40 MG/DAY, ONCE DAILY
     Route: 042
     Dates: start: 20131212, end: 20131212
  13. VANCOMYCIN [Concomitant]
     Active Substance: VANCOMYCIN
     Indication: FEBRILE NEUTROPENIA
     Route: 042
     Dates: start: 20131122, end: 20131201
  14. VEPESID [Concomitant]
     Active Substance: ETOPOSIDE
     Indication: HYPERFERRITINAEMIA
     Route: 042
     Dates: start: 20131226, end: 20131226
  15. PROGRAF [Suspect]
     Active Substance: TACROLIMUS
     Indication: PROPHYLAXIS AGAINST GRAFT VERSUS HOST DISEASE
     Dosage: 0.25 MG/DAY, UNKNOWN FREQ.
     Route: 042
     Dates: start: 20131114, end: 20131201
  16. THYMOGLOBULINE [Concomitant]
     Active Substance: LAPINE T-LYMPHOCYTE IMMUNE GLOBULIN
     Indication: BONE MARROW CONDITIONING REGIMEN
     Route: 042
     Dates: start: 20131107, end: 20131110
  17. THYMOGLOBULINE [Concomitant]
     Active Substance: LAPINE T-LYMPHOCYTE IMMUNE GLOBULIN
     Dosage: 10?40 MG/DAY, ONCE DAILY
     Route: 042
     Dates: start: 20131214, end: 20131214
  18. THYMOGLOBULINE [Concomitant]
     Active Substance: LAPINE T-LYMPHOCYTE IMMUNE GLOBULIN
     Dosage: 10?40 MG/DAY, ONCE DAILY
     Route: 042
     Dates: start: 20131218, end: 20131218
  19. METHYLPREDNISOLONE. [Concomitant]
     Active Substance: METHYLPREDNISOLONE
     Route: 042
     Dates: start: 20131204
  20. METHOTREXATE. [Concomitant]
     Active Substance: METHOTREXATE
     Route: 042
     Dates: start: 20131117, end: 20131117
  21. ALKERAN [Suspect]
     Active Substance: MELPHALAN
     Indication: BONE MARROW CONDITIONING REGIMEN
     Route: 042
     Dates: start: 20131108, end: 20131110
  22. VICCLOX [ACICLOVIR] [Concomitant]
     Active Substance: ACYCLOVIR
     Indication: INFECTION PROPHYLAXIS
     Route: 042
     Dates: start: 20131105, end: 20131205
  23. METHYLPREDNISOLONE. [Concomitant]
     Active Substance: METHYLPREDNISOLONE
     Indication: PROPHYLAXIS AGAINST GRAFT VERSUS HOST DISEASE
     Route: 042
     Dates: start: 20131112, end: 20131201
  24. METHOTREXATE. [Concomitant]
     Active Substance: METHOTREXATE
     Route: 042
     Dates: start: 20131125, end: 20131125
  25. MEROPEN [MEROPENEM] [Concomitant]
     Active Substance: MEROPENEM
     Indication: FEBRILE NEUTROPENIA
     Route: 042
     Dates: start: 20131121, end: 20131122

REACTIONS (9)
  - Visual impairment [Recovered/Resolved]
  - Febrile neutropenia [Recovered/Resolved]
  - Mucosal disorder [Recovered/Resolved]
  - Multiple organ dysfunction syndrome [Fatal]
  - Gastric haemorrhage [Recovered/Resolved]
  - Thrombotic microangiopathy [Fatal]
  - Graft versus host disease [Recovered/Resolved]
  - Respiratory failure [Fatal]
  - Cystitis haemorrhagic [Recovered/Resolved]

NARRATIVE: CASE EVENT DATE: 20131114
